FAERS Safety Report 11292427 (Version 3)
Quarter: 2015Q3

REPORT INFORMATION
  Report Type: Spontaneous
  Country: US (occurrence: US)
  Receive Date: 20150722
  Receipt Date: 20150804
  Transmission Date: 20151125
  Serious: Yes (Other)
  Sender: FDA-Public Use
  Company Number: US-PFIZER INC-2015238735

PATIENT
  Age: 16 Year
  Sex: Male

DRUGS (8)
  1. PHENOBARBITAL. [Concomitant]
     Active Substance: PHENOBARBITAL
     Dosage: OVER THE FIRST 24 HOURS, HE RECEIVED A TOTAL OF 360 MG
     Route: 030
  2. PHENOBARBITAL. [Concomitant]
     Active Substance: PHENOBARBITAL
     Indication: SEIZURE
     Dosage: 60 MG, UNK
     Route: 030
     Dates: start: 19730519
  3. TEGRETOL [Concomitant]
     Active Substance: CARBAMAZEPINE
     Indication: SEIZURE
     Dosage: 600 MG, DAILY
     Dates: start: 19730604, end: 19730606
  4. PHENYTOIN. [Suspect]
     Active Substance: PHENYTOIN
     Indication: SEIZURE
     Dosage: 100 MG, UNK
     Route: 030
     Dates: start: 19730519
  5. PHENYTOIN. [Suspect]
     Active Substance: PHENYTOIN
     Dosage: OVER THE FIRST 24 HOURS, RECEIVED A TOTAL OF 1,050 MG
     Route: 030
  6. PHENYTOIN. [Suspect]
     Active Substance: PHENYTOIN
     Dosage: 400 MG, DAILY
     Route: 030
  7. PHENOBARBITAL. [Concomitant]
     Active Substance: PHENOBARBITAL
     Dosage: 180 TO 300 MG, DAILY
     Route: 030
  8. DIAZEPAM. [Concomitant]
     Active Substance: DIAZEPAM
     Indication: SEIZURE
     Dosage: 5 MG, 4X/DAY (EVERY 6 HRS)
     Route: 030
     Dates: start: 19730519

REACTIONS (2)
  - Serum sickness [Unknown]
  - Drug-induced liver injury [Recovered/Resolved]
